FAERS Safety Report 5209512-4 (Version None)
Quarter: 2007Q1

REPORT INFORMATION
  Report Type: 
  Country: None (occurrence: None)
  Receive Date: 20070116
  Receipt Date: 20070109
  Transmission Date: 20070707
  Serious: Yes (Death)
  Sender: FDA-Public Use
  Company Number: US-PFIZER INC-2007002743

PATIENT

DRUGS (3)
  1. ACCUPRIL [Suspect]
  2. LIPITOR [Suspect]
  3. GLUCOTROL XL [Suspect]

REACTIONS (1)
  - DEATH [None]
